FAERS Safety Report 5698413-3 (Version None)
Quarter: 2008Q2

REPORT INFORMATION
  Report Type: 
  Country: None (occurrence: None)
  Receive Date: 20080403
  Receipt Date: 20080319
  Transmission Date: 20081010
  Serious: Yes (Death)
  Sender: FDA-Public Use
  Company Number: S08-UKI-01123-01

PATIENT
  Age: 66 Year
  Sex: Male

DRUGS (10)
  1. CITALOPRAM HYDROBROMIDE [Suspect]
     Indication: DEPRESSION
     Dates: start: 20070601, end: 20070601
  2. CITALOPRAM HYDROBROMIDE [Suspect]
     Indication: DEPRESSION
     Dosage: 20 MG QD PO
     Route: 048
     Dates: start: 20070402, end: 20070601
  3. ACETAMINOPHEN [Suspect]
     Dates: start: 20070601, end: 20070601
  4. ACETAMINOPHEN [Suspect]
  5. ETORICOXIB [Suspect]
     Indication: MUSCULOSKELETAL PAIN
     Dates: start: 20070601, end: 20070601
  6. ETORICOXIB [Suspect]
     Indication: MUSCULOSKELETAL PAIN
     Dosage: 90 MG PO
     Route: 048
     Dates: start: 20070322, end: 20070601
  7. MIRTAZAPINE [Suspect]
     Dates: start: 20070601, end: 20070601
  8. MIRTAZAPINE [Suspect]
  9. OXYCODONE HCL [Suspect]
     Indication: MUSCULOSKELETAL PAIN
     Dates: start: 20070601, end: 20070601
  10. OXYCODONE HCL [Suspect]
     Indication: MUSCULOSKELETAL PAIN
     Dosage: 80 MG
     Dates: end: 20070416

REACTIONS (3)
  - CORONARY ARTERY DISEASE [None]
  - DRUG INTERACTION [None]
  - MULTIPLE DRUG OVERDOSE [None]
